FAERS Safety Report 15149569 (Version 1)
Quarter: 2018Q3

REPORT INFORMATION
  Report Type: Spontaneous
  Country: US (occurrence: US)
  Receive Date: 20180716
  Receipt Date: 20180716
  Transmission Date: 20181010
  Serious: No
  Sender: FDA-Public Use
  Company Number: US-VANDA PHARMACEUTICALS, INC-2018TASUS002043

PATIENT
  Sex: Male

DRUGS (1)
  1. HETLIOZ [Suspect]
     Active Substance: TASIMELTEON
     Indication: INSOMNIA
     Dosage: 20 MG, QHS
     Route: 048

REACTIONS (4)
  - Pain in jaw [Unknown]
  - Toothache [Unknown]
  - Headache [Unknown]
  - Product use in unapproved indication [Unknown]
